FAERS Safety Report 5057781-6 (Version None)
Quarter: 2006Q3

REPORT INFORMATION
  Report Type: 
  Country: None (occurrence: None)
  Receive Date: 20060721
  Receipt Date: 20060215
  Transmission Date: 20061208
  Serious: No
  Sender: FDA-Public Use
  Company Number: US-GLAXOSMITHKLINE-A0593848A

PATIENT
  Sex: Female

DRUGS (6)
  1. AVANDIA [Suspect]
     Dosage: 4MG TWICE PER DAY
     Route: 048
  2. GLIPIZIDE [Concomitant]
  3. LISINOPRIL [Concomitant]
  4. ZANTAC [Concomitant]
  5. TRAZODONE HCL [Concomitant]
  6. METFORMIN [Concomitant]

REACTIONS (1)
  - DRUG INEFFECTIVE [None]
